FAERS Safety Report 10196788 (Version 1)
Quarter: 2014Q2

REPORT INFORMATION
  Report Type: Spontaneous
  Country: US (occurrence: US)
  Receive Date: 20140527
  Receipt Date: 20140527
  Transmission Date: 20141212
  Serious: Yes (Other)
  Sender: FDA-Public Use
  Company Number: US-BAYER-2014-073697

PATIENT
  Age: 71 Year
  Sex: Female
  Weight: 127 kg

DRUGS (2)
  1. BAYER GENUINE ASPIRIN ORIGINAL STRENGTH [Suspect]
     Indication: THROMBOSIS PROPHYLAXIS
     Dosage: 1 DF, QD
     Route: 048
     Dates: start: 201201
  2. LENALIDOMIDE [Concomitant]

REACTIONS (4)
  - Wound haemorrhage [Recovered/Resolved]
  - Contusion [Recovered/Resolved]
  - Incorrect drug administration duration [None]
  - Off label use [None]
